FAERS Safety Report 7808799-9 (Version None)
Quarter: 2011Q4

REPORT INFORMATION
  Report Type: 
  Country: None (occurrence: None)
  Receive Date: 20111006
  Receipt Date: 20110923
  Transmission Date: 20120403
  Serious: Yes (Other)
  Sender: FDA-Public Use
  Company Number: DSA_47768_2011

PATIENT
  Age: 36 Year
  Sex: Female

DRUGS (1)
  1. BUPROPION HCL [Suspect]
     Indication: DEPRESSION
     Dosage: (150 MG QD ORAL)
     Route: 048

REACTIONS (6)
  - ANXIETY [None]
  - TACHYCARDIA [None]
  - HALLUCINATION, OLFACTORY [None]
  - HALLUCINATION, GUSTATORY [None]
  - HYPERACUSIS [None]
  - HEADACHE [None]
